FAERS Safety Report 4353865-6 (Version None)
Quarter: 2004Q2

REPORT INFORMATION
  Report Type: 
  Country: None (occurrence: None)
  Receive Date: 20040430
  Receipt Date: 20040415
  Transmission Date: 20050107
  Serious: Yes (Other)
  Sender: FDA-Public Use
  Company Number: TNZUK200400047

PATIENT
  Sex: Female

DRUGS (2)
  1. INNOHEP [Suspect]
     Dosage: SUBCUTANEOUS
     Route: 058
  2. TPN (TPN) [Concomitant]

REACTIONS (1)
  - BLOOD POTASSIUM INCREASED [None]
